FAERS Safety Report 23261803 (Version 1)
Quarter: 2023Q4

REPORT INFORMATION
  Report Type: Spontaneous
  Country: US (occurrence: US)
  Receive Date: 20231205
  Receipt Date: 20231205
  Transmission Date: 20240110
  Serious: Yes (Other)
  Sender: FDA-Public Use
  Company Number: US-MLMSERVICE-20231121-4674634-1

PATIENT

DRUGS (5)
  1. TESTOSTERONE [Suspect]
     Active Substance: TESTOSTERONE
     Indication: Muscle mass
     Dosage: 250 MILLIGRAM, EVERY WEEK
     Route: 065
  2. TESTOSTERONE [Suspect]
     Active Substance: TESTOSTERONE
     Dosage: 350 MILLIGRAM, EVERY WEEK
     Route: 065
  3. TESTOSTERONE [Suspect]
     Active Substance: TESTOSTERONE
     Dosage: 100 MILLIGRAM, EVERY WEEK
     Route: 065
  4. TRENBOLONE ACETATE [Suspect]
     Active Substance: TRENBOLONE ACETATE
     Indication: Muscle mass
     Dosage: UNK
     Route: 065
  5. ANASTROZOLE [Concomitant]
     Active Substance: ANASTROZOLE
     Indication: Antioestrogen therapy
     Dosage: UNK, EVERY WEEK
     Route: 065

REACTIONS (3)
  - Acute kidney injury [Unknown]
  - Amenorrhoea [Unknown]
  - Drug abuse [Unknown]
